FAERS Safety Report 9875981 (Version 2)
Quarter: 2014Q1

REPORT INFORMATION
  Report Type: Other
  Country: US (occurrence: US)
  Receive Date: 20140206
  Receipt Date: 20140206
  Transmission Date: 20141002
  Serious: No
  Sender: FDA-Public Use
  Company Number: US-ACORDA-ACO_36124_2013

PATIENT
  Age: 49 Year
  Sex: Female
  Weight: 68.93 kg

DRUGS (8)
  1. AMPYRA [Suspect]
     Indication: MULTIPLE SCLEROSIS
     Dosage: 10 MG, BID
     Route: 048
     Dates: start: 20130302, end: 20130320
  2. CLONAZEPAM [Concomitant]
     Indication: PRODUCT USED FOR UNKNOWN INDICATION
     Dosage: 1 MG, UNK
     Route: 048
  3. FIBER [Concomitant]
     Indication: PRODUCT USED FOR UNKNOWN INDICATION
     Dosage: 625 MG, UNK
     Route: 048
  4. LIPITOR [Concomitant]
     Indication: PRODUCT USED FOR UNKNOWN INDICATION
     Dosage: 20 MG, UNK
     Route: 048
  5. METFORMIN [Concomitant]
     Indication: PRODUCT USED FOR UNKNOWN INDICATION
     Dosage: 1000 MG, UNK
     Route: 048
  6. PLAVIX [Concomitant]
     Indication: PRODUCT USED FOR UNKNOWN INDICATION
     Dosage: 75 MG, UNK
     Route: 048
  7. RAMIPRIL [Concomitant]
     Indication: PRODUCT USED FOR UNKNOWN INDICATION
     Dosage: 2.5 MG, UNK
     Route: 048
  8. VITAMIN D2 [Concomitant]
     Indication: PRODUCT USED FOR UNKNOWN INDICATION
     Dosage: 2000 IU, UNK
     Route: 048

REACTIONS (2)
  - Headache [Recovered/Resolved]
  - Drug ineffective [Unknown]
